FAERS Safety Report 6757595-2 (Version None)
Quarter: 2010Q2

REPORT INFORMATION
  Report Type: 
  Country: None (occurrence: None)
  Receive Date: 20100607
  Receipt Date: 20100526
  Transmission Date: 20101027
  Serious: Yes (Hospitalization, Other)
  Sender: FDA-Public Use
  Company Number: PL-JNJFOC-20100510454

PATIENT
  Sex: Male
  Weight: 68 kg

DRUGS (2)
  1. GOLIMUMAB [Suspect]
     Indication: PSORIATIC ARTHROPATHY
     Route: 058
  2. GOLIMUMAB [Suspect]
     Route: 058

REACTIONS (1)
  - BLADDER TRANSITIONAL CELL CARCINOMA [None]
